FAERS Safety Report 5724458-0 (Version None)
Quarter: 2008Q2

REPORT INFORMATION
  Report Type: 
  Country: None (occurrence: None)
  Receive Date: 20080426
  Receipt Date: 20080424
  Transmission Date: 20081010
  Serious: Yes (Hospitalization)
  Sender: FDA-Public Use
  Company Number: 2008SP007728

PATIENT
  Age: 76 Year
  Sex: Male
  Weight: 61 kg

DRUGS (9)
  1. TEMODAL [Suspect]
     Indication: GLIOBLASTOMA MULTIFORME
     Dosage: 145 MG/M2;QD;PO
     Route: 048
     Dates: start: 20061011, end: 20061015
  2. TEMODAL [Suspect]
     Indication: GLIOBLASTOMA MULTIFORME
     Dosage: 145 MG/M2;QD;PO
     Route: 048
     Dates: start: 20061115, end: 20061119
  3. TEMODAL [Suspect]
     Indication: GLIOBLASTOMA MULTIFORME
     Dosage: 145 MG/M2;QD;PO
     Route: 048
     Dates: start: 20070110, end: 20070114
  4. TEMODAL [Suspect]
     Indication: GLIOBLASTOMA MULTIFORME
     Dosage: 145 MG/M2;QD;PO
     Route: 048
     Dates: start: 20070207, end: 20070211
  5. TEMODAL [Suspect]
     Indication: GLIOBLASTOMA MULTIFORME
     Dosage: 145 MG/M2;QD;PO
     Route: 048
     Dates: start: 20070307, end: 20070311
  6. MAGNESIUM OXIDE [Concomitant]
  7. KYTRIL [Concomitant]
  8. ISOBIDE [Concomitant]
  9. GLYCEOL [Concomitant]

REACTIONS (3)
  - ASPIRATION [None]
  - DEPRESSED LEVEL OF CONSCIOUSNESS [None]
  - PNEUMONIA [None]
